FAERS Safety Report 18857169 (Version 2)
Quarter: 2021Q1

REPORT INFORMATION
  Report Type: Spontaneous
  Country: JP (occurrence: JP)
  Receive Date: 20210208
  Receipt Date: 20210331
  Transmission Date: 20210420
  Serious: Yes (Hospitalization, Other)
  Sender: FDA-Public Use
  Company Number: JP-ROCHE-2764684

PATIENT
  Age: 8 Decade
  Sex: Male

DRUGS (2)
  1. TECENTRIQ [Suspect]
     Active Substance: ATEZOLIZUMAB
     Indication: HEPATOCELLULAR CARCINOMA
     Dosage: DOSAGE IS UNCERTAIN.
     Route: 041
     Dates: start: 202012
  2. AVASTIN [Suspect]
     Active Substance: BEVACIZUMAB
     Indication: HEPATOCELLULAR CARCINOMA
     Dosage: DOSAGE IS UNCERTAIN.
     Route: 041
     Dates: start: 202012

REACTIONS (4)
  - Varices oesophageal [Unknown]
  - Melaena [Not Recovered/Not Resolved]
  - Ascites [Unknown]
  - Thrombosis [Not Recovered/Not Resolved]
